FAERS Safety Report 4381574-6 (Version None)
Quarter: 2004Q2

REPORT INFORMATION
  Report Type: 
  Country: None (occurrence: None)
  Receive Date: 20040615
  Receipt Date: 20040602
  Transmission Date: 20050107
  Serious: Yes (Congenital Anomaly)
  Sender: FDA-Public Use
  Company Number: S04-USA-03108-02

PATIENT
  Sex: Male

DRUGS (2)
  1. CELEXA [Suspect]
     Dosage: 20 MG QD TRANSPLACENTAL
     Route: 064
     Dates: end: 20040401
  2. LAMICTAL [Concomitant]

REACTIONS (3)
  - CLEFT LIP AND PALATE [None]
  - DRUG EXPOSURE DURING PREGNANCY [None]
  - FAILURE TO THRIVE [None]
